FAERS Safety Report 6945213-X (Version None)
Quarter: 2010Q3

REPORT INFORMATION
  Report Type: 
  Country: None (occurrence: None)
  Receive Date: 20100827
  Receipt Date: 20100603
  Transmission Date: 20110219
  Serious: No
  Sender: FDA-Public Use
  Company Number: US-KINGPHARMUSA00001-K201000715

PATIENT
  Age: 74 Year
  Sex: Male

DRUGS (1)
  1. FLECTOR [Suspect]
     Indication: SPINAL COLUMN STENOSIS
     Dosage: 2 PATCHES, Q12HRS APPLIED ONE PATCH TO EACH BUTTOCK
     Route: 061
     Dates: start: 20100101

REACTIONS (2)
  - FATIGUE [None]
  - MALAISE [None]
